FAERS Safety Report 23753882 (Version 1)
Quarter: 2024Q2

REPORT INFORMATION
  Report Type: Spontaneous
  Country: CN (occurrence: CN)
  Receive Date: 20240417
  Receipt Date: 20240417
  Transmission Date: 20240716
  Serious: Yes (Life-Threatening, Hospitalization, Disabling, Other)
  Sender: FDA-Public Use
  Company Number: CN-009507513-2404CHN005779

PATIENT
  Age: 52 Year
  Sex: Male
  Weight: 67 kg

DRUGS (4)
  1. STEGLATRO [Suspect]
     Active Substance: ERTUGLIFLOZIN PIDOLATE
     Indication: Diabetes mellitus
     Dosage: 5 MG, QD, ORALLY
     Route: 048
     Dates: start: 20240328, end: 20240406
  2. RIVAROXABAN [Suspect]
     Active Substance: RIVAROXABAN
     Indication: Thrombosis prophylaxis
     Dosage: 20 MG, QD
     Route: 048
     Dates: start: 20240328, end: 20240404
  3. LEVOFLOXACIN [Suspect]
     Active Substance: LEVOFLOXACIN
     Indication: Infection
     Dosage: 0.5 G, QD, IV DRIP
     Route: 041
     Dates: start: 20240404, end: 20240406
  4. ATORVASTATIN CALCIUM [Suspect]
     Active Substance: ATORVASTATIN CALCIUM
     Indication: Arteriosclerosis
     Dosage: 20 MG, QD (REPORTED AS QN), ORALLY
     Route: 048
     Dates: start: 20240328, end: 20240404

REACTIONS (18)
  - Subacute hepatic failure [Not Recovered/Not Resolved]
  - Hypertension [Unknown]
  - Diabetes mellitus [Unknown]
  - Bronchitis chronic [Unknown]
  - Emphysema [Unknown]
  - Cardiac failure acute [Unknown]
  - Hyperuricaemia [Unknown]
  - Pneumonia [Unknown]
  - Atrial fibrillation [Unknown]
  - Carcinoembryonic antigen increased [Unknown]
  - Carbohydrate antigen 125 increased [Unknown]
  - Cardiomegaly [Unknown]
  - Pulmonary artery dilatation [Unknown]
  - Ascites [Unknown]
  - Congestive hepatopathy [Unknown]
  - Drug-induced liver injury [Unknown]
  - Coagulopathy [Unknown]
  - Hepatitis viral [Unknown]

NARRATIVE: CASE EVENT DATE: 20240404
